FAERS Safety Report 11294534 (Version 1)
Quarter: 2015Q2

REPORT INFORMATION
  Report Type: Spontaneous
  Country: US (occurrence: None)
  Receive Date: 20150623
  Receipt Date: 20150623
  Transmission Date: 20150821
  Serious: Yes (Other)
  Sender: FDA-Public Use
  Company Number: RB-73335-2015

PATIENT
  Age: 88 Year
  Sex: Female

DRUGS (6)
  1. BYSTOLIC [Concomitant]
     Active Substance: NEBIVOLOL HYDROCHLORIDE
  2. VITAMIN D [Concomitant]
     Active Substance: CHOLECALCIFEROL
  3. LIPITOR [Concomitant]
     Active Substance: ATORVASTATIN CALCIUM
  4. DIOVAN [Concomitant]
     Active Substance: VALSARTAN
  5. DEXTROMETHORPHAN W/GUAIFENESIN 1200 MG (RB (RECKITT BENCKISER)) [Suspect]
     Active Substance: DEXTROMETHORPHAN\GUAIFENESIN
     Indication: PRODUCT USED FOR UNKNOWN INDICATION
     Dosage: 1X/5 HOURS, TOOK 1 TABLET ON 08-FEB-2015 AND ANOTHER TABLET 5 HOURS LATER.
     Route: 048
     Dates: start: 20150208
  6. CALTRATE [Concomitant]
     Active Substance: CALCIUM CARBONATE

REACTIONS (4)
  - Inappropriate schedule of drug administration [None]
  - Dizziness [None]
  - Restlessness [None]
  - Fatigue [None]

NARRATIVE: CASE EVENT DATE: 201502
